FAERS Safety Report 8763775 (Version 8)
Quarter: 2015Q2

REPORT INFORMATION
  Report Type: Report from Study
  Country: JP (occurrence: JP)
  Receive Date: 20120831
  Receipt Date: 20150603
  Transmission Date: 20150821
  Serious: Yes (Death, Hospitalization)
  Sender: FDA-Public Use
  Company Number: PHHO2011JP021574

PATIENT
  Age: 57 Year
  Sex: Male
  Weight: 61 kg

DRUGS (39)
  1. SLOW K [Suspect]
     Active Substance: POTASSIUM CHLORIDE
     Dosage: 600 MG, TID
     Route: 048
     Dates: start: 20120517
  2. KCL [Suspect]
     Active Substance: POTASSIUM CHLORIDE
     Dosage: 14 ML, QD
     Route: 048
  3. ANCARON [Concomitant]
     Active Substance: AMIODARONE HYDROCHLORIDE
     Dosage: 150 MG, BID
     Route: 048
     Dates: start: 20120713
  4. DIGOXIN. [Concomitant]
     Active Substance: DIGOXIN
     Indication: ATRIAL FIBRILLATION
     Dosage: 0.125 MG, QD
     Route: 048
  5. LASIX [Concomitant]
     Active Substance: FUROSEMIDE
     Dosage: 120 MG, QD
     Route: 042
  6. FLUITRAN [Concomitant]
     Active Substance: TRICHLORMETHIAZIDE
     Dosage: 2 MG, QOD
     Route: 048
     Dates: start: 20111115
  7. ARTIST [Concomitant]
     Active Substance: CARVEDILOL
     Indication: CARDIAC FAILURE CHRONIC
     Dosage: 3.75 MG, BID
     Route: 048
     Dates: start: 20120725
  8. MYSLEE [Concomitant]
     Active Substance: ZOLPIDEM TARTRATE
     Indication: INSOMNIA
     Dosage: 5 MG, QD
     Route: 048
     Dates: start: 20111228
  9. ANCARON [Concomitant]
     Active Substance: AMIODARONE HYDROCHLORIDE
     Indication: ATRIAL FIBRILLATION
     Dosage: 200 MG, BID
     Route: 048
  10. ANCARON [Concomitant]
     Active Substance: AMIODARONE HYDROCHLORIDE
     Dosage: 100 MG, BID
     Route: 048
     Dates: start: 20121218
  11. ARTIST [Concomitant]
     Active Substance: CARVEDILOL
     Indication: ATRIAL FIBRILLATION
     Dosage: 5 MG, BID
     Route: 048
  12. SLOW K [Suspect]
     Active Substance: POTASSIUM CHLORIDE
     Dosage: UNK UNK, TID
     Route: 048
  13. SLOW K [Suspect]
     Active Substance: POTASSIUM CHLORIDE
     Dosage: UNK
  14. LASIX [Concomitant]
     Active Substance: FUROSEMIDE
     Dosage: 40 MG, QD
     Route: 048
  15. FLUITRAN [Concomitant]
     Active Substance: TRICHLORMETHIAZIDE
     Indication: CARDIAC FAILURE CHRONIC
     Dosage: 1 MG, QOD
     Route: 048
  16. WARFARIN [Concomitant]
     Active Substance: WARFARIN
     Indication: THROMBOSIS PROPHYLAXIS
     Dosage: 1.5 MG, QD
     Route: 048
  17. WARFARIN [Concomitant]
     Active Substance: WARFARIN
     Dosage: 1 MG, QD
     Route: 048
  18. WARFARIN [Concomitant]
     Active Substance: WARFARIN
     Dosage: 0.5 MG, QD
     Route: 048
  19. POTASSIUM CHLORIDE. [Concomitant]
     Active Substance: POTASSIUM CHLORIDE
     Indication: ELECTROLYTE SUBSTITUTION THERAPY
     Dosage: 20 MEQ, QD
     Route: 041
     Dates: start: 20121218, end: 20130105
  20. ALISKIREN [Suspect]
     Active Substance: ALISKIREN
     Indication: CARDIAC FAILURE CHRONIC
     Dosage: 1 DF, QD
     Route: 048
     Dates: start: 20100921, end: 20120729
  21. SLOW K [Suspect]
     Active Substance: POTASSIUM CHLORIDE
     Indication: ELECTROLYTE SUBSTITUTION THERAPY
     Dosage: 1000 MG, TID
     Route: 048
  22. SLOW K [Suspect]
     Active Substance: POTASSIUM CHLORIDE
     Dosage: UNK UNK, TID
     Route: 048
     Dates: end: 201212
  23. NITRODERM [Concomitant]
     Active Substance: NITROGLYCERIN
     Indication: CARDIAC FAILURE CHRONIC
     Dosage: 25 MG, QD
     Route: 062
  24. LASIX [Concomitant]
     Active Substance: FUROSEMIDE
     Indication: CARDIAC FAILURE CHRONIC
     Dosage: 20 MG, QOD
     Route: 048
  25. LASIX [Concomitant]
     Active Substance: FUROSEMIDE
     Dosage: 50 MG, QD
     Route: 048
     Dates: start: 20121007
  26. LASIX [Concomitant]
     Active Substance: FUROSEMIDE
     Indication: NUTRITIONAL SUPPLEMENTATION
     Dosage: 80 MG, QD
     Route: 042
     Dates: start: 20121223
  27. ENALAPRIL [Suspect]
     Active Substance: ENALAPRIL
     Indication: CARDIAC FAILURE CHRONIC
     Dosage: UNK
     Route: 048
     Dates: start: 20100921, end: 20120730
  28. SLOW K [Suspect]
     Active Substance: POTASSIUM CHLORIDE
     Dosage: 600 MG, TID
     Route: 048
  29. SELARA [Suspect]
     Active Substance: EPLERENONE
     Indication: CARDIAC FAILURE CHRONIC
     Dosage: 25 MG, QD
     Route: 048
     Dates: start: 20120730
  30. ANCARON [Concomitant]
     Active Substance: AMIODARONE HYDROCHLORIDE
     Dosage: 150 MG, QD
     Route: 048
  31. ACINON [Concomitant]
     Active Substance: NIZATIDINE
     Indication: GASTRITIS PROPHYLAXIS
     Dosage: 150 MG, BID
     Route: 048
  32. COVERSYL [Concomitant]
     Active Substance: PERINDOPRIL
     Indication: CARDIAC FAILURE CHRONIC
     Dosage: 2 MG, QD
     Route: 048
     Dates: start: 20120730
  33. KCL [Suspect]
     Active Substance: POTASSIUM CHLORIDE
     Indication: ELECTROLYTE SUBSTITUTION THERAPY
     Dosage: 30 ML, QD
     Route: 048
     Dates: start: 20120730
  34. DIGOXIN. [Concomitant]
     Active Substance: DIGOXIN
     Indication: CARDIAC FAILURE CHRONIC
     Dosage: 0.125 MG, QOD
     Route: 048
  35. ACARDI [Concomitant]
     Indication: CARDIAC FAILURE CHRONIC
     Dosage: 1.25 MG, QD
     Route: 048
  36. FLORID-D [Concomitant]
     Active Substance: MICONAZOLE
     Indication: TINEA PEDIS
     Route: 065
  37. MYSLEE [Concomitant]
     Active Substance: ZOLPIDEM TARTRATE
     Dosage: 10 MG, QD
     Route: 048
     Dates: start: 20121223, end: 20121231
  38. ANCARON [Concomitant]
     Active Substance: AMIODARONE HYDROCHLORIDE
     Indication: VENTRICULAR TACHYCARDIA
     Dosage: 75 MG, BID
     Route: 048
  39. ARTIST [Concomitant]
     Active Substance: CARVEDILOL
     Dosage: 5 MG, QD
     Route: 048
     Dates: start: 20121220

REACTIONS (4)
  - Cardiac failure [Recovered/Resolved]
  - Cardiac failure [Fatal]
  - Cardiac failure [Recovered/Resolved]
  - Hyperkalaemia [Recovering/Resolving]

NARRATIVE: CASE EVENT DATE: 20111224
